FAERS Safety Report 9575258 (Version 2)
Quarter: 2013Q4

REPORT INFORMATION
  Report Type: Spontaneous
  Country: CZ (occurrence: CZ)
  Receive Date: 20131001
  Receipt Date: 20131017
  Transmission Date: 20140711
  Serious: Yes (Other)
  Sender: FDA-Public Use
  Company Number: CZ-GLAXOSMITHKLINE-B0926330A

PATIENT
  Age: 82 Year
  Sex: Female

DRUGS (4)
  1. VOTRIENT [Suspect]
     Indication: RENAL CANCER
     Dosage: 400MG PER DAY
     Route: 065
     Dates: start: 20130207
  2. HYDROCHLOROTHIAZIDE + LOSARTAN POTASSIUM [Concomitant]
  3. TENAXUM [Concomitant]
  4. UNIPRES [Concomitant]

REACTIONS (4)
  - Atrial fibrillation [Unknown]
  - Bradycardia [Unknown]
  - Asthenia [Recovered/Resolved]
  - Fatigue [Recovered/Resolved]
